FAERS Safety Report 5587716-9 (Version None)
Quarter: 2007Q4

REPORT INFORMATION
  Report Type: 
  Country: None (occurrence: None)
  Receive Date: 20071207
  Receipt Date: 20070927
  Transmission Date: 20080405
  Serious: Yes (Hospitalization)
  Sender: FDA-Public Use
  Company Number: 07-369

PATIENT
  Sex: Female

DRUGS (2)
  1. ALEVE [Suspect]
     Indication: BACK PAIN
     Dosage: UNK, DAILY, ORAL
     Route: 048
  2. ALEVE [Suspect]
     Indication: BACK PAIN
     Dosage: UNK, DAILY, ORAL
     Route: 048

REACTIONS (2)
  - DYSGEUSIA [None]
  - OESOPHAGEAL PERFORATION [None]
